FAERS Safety Report 6703443-6 (Version None)
Quarter: 2010Q2

REPORT INFORMATION
  Report Type: 
  Country: None (occurrence: None)
  Receive Date: 20100428
  Receipt Date: 20091222
  Transmission Date: 20101027
  Serious: Yes (Hospitalization)
  Sender: FDA-Public Use
  Company Number: 8054509

PATIENT
  Sex: Female
  Weight: 92 kg

DRUGS (8)
  1. CERTOLIZUMAB PEGOL (CERTOLIZUMAB PEGOL) [Suspect]
     Indication: RHEUMATOID ARTHRITIS
     Dosage: (200 MG 1X/2 WEEKS SUBCUTANEOUS); SEE IMAGE
     Route: 058
     Dates: start: 20060111, end: 20060503
  2. CERTOLIZUMAB PEGOL (CERTOLIZUMAB PEGOL) [Suspect]
     Indication: RHEUMATOID ARTHRITIS
     Dosage: (200 MG 1X/2 WEEKS SUBCUTANEOUS); SEE IMAGE
     Route: 058
     Dates: start: 20060517, end: 20091112
  3. CERTOLIZUMAB PEGOL (CERTOLIZUMAB PEGOL) [Suspect]
     Indication: RHEUMATOID ARTHRITIS
     Dosage: (200 MG 1X/2 WEEKS SUBCUTANEOUS); SEE IMAGE
     Route: 058
     Dates: start: 20091207
  4. METHOTREXATE [Concomitant]
  5. DICLOBERL [Concomitant]
  6. AUGMENTIN '125' [Concomitant]
  7. VITAMIN B6 [Concomitant]
  8. OTHER DRUGS FOR TREATMENT OF TUBERCULOSIS [Concomitant]

REACTIONS (8)
  - BRONCHITIS [None]
  - DRUG INEFFECTIVE [None]
  - DYSPNOEA EXERTIONAL [None]
  - FIBROADENOMA OF BREAST [None]
  - GOITRE [None]
  - HEPATITIS CHOLESTATIC [None]
  - OSTEOCHONDROSIS [None]
  - PLEURISY [None]
